FAERS Safety Report 13001425 (Version 1)
Quarter: 2016Q4

REPORT INFORMATION
  Report Type: Spontaneous
  Country: JP (occurrence: JP)
  Receive Date: 20161206
  Receipt Date: 20161206
  Transmission Date: 20170207
  Serious: Yes (Death, Other)
  Sender: FDA-Public Use
  Company Number: PHJP2016JP035293

PATIENT
  Age: 42 Year
  Sex: Female

DRUGS (1)
  1. VOTRIENT [Suspect]
     Active Substance: PAZOPANIB HYDROCHLORIDE
     Indication: SARCOMA UTERUS
     Dosage: UNK
     Route: 048
     Dates: end: 201605

REACTIONS (3)
  - Splenic infarction [Unknown]
  - Malignant neoplasm progression [Fatal]
  - Renal infarct [Unknown]
